FAERS Safety Report 20161155 (Version 1)
Quarter: 2021Q4

REPORT INFORMATION
  Report Type: Spontaneous
  Country: US (occurrence: None)
  Receive Date: 20211207
  Receipt Date: 20211207
  Transmission Date: 20220303
  Serious: No
  Sender: FDA-Public Use
  Company Number: None

PATIENT
  Age: 25 Year
  Sex: Female

DRUGS (1)
  1. INFED [Suspect]
     Active Substance: IRON DEXTRAN
     Dosage: OTHER FREQUENCY : ONCE;?
     Route: 042

REACTIONS (3)
  - Eye swelling [None]
  - Lacrimation increased [None]
  - Infusion related reaction [None]

NARRATIVE: CASE EVENT DATE: 20211201
